FAERS Safety Report 14201753 (Version 1)
Quarter: 2017Q4

REPORT INFORMATION
  Report Type: Report from Study
  Country: PR (occurrence: PR)
  Receive Date: 20171117
  Receipt Date: 20171117
  Transmission Date: 20180321
  Serious: Yes (Hospitalization)
  Sender: FDA-Public Use
  Company Number: PR-BAYER-2017-215993

PATIENT
  Age: 58 Year
  Sex: Female

DRUGS (1)
  1. STIVARGA [Suspect]
     Active Substance: REGORAFENIB
     Indication: COLON CANCER
     Dosage: 160 MG DAILY FOR 21 DAYS
     Route: 048
     Dates: start: 20170424

REACTIONS (2)
  - Syncope [None]
  - Asthenia [None]
